FAERS Safety Report 23034363 (Version 2)
Quarter: 2023Q4

REPORT INFORMATION
  Report Type: Spontaneous
  Country: FR (occurrence: FR)
  Receive Date: 20231005
  Receipt Date: 20231006
  Transmission Date: 20240109
  Serious: Yes (Hospitalization, Other)
  Sender: FDA-Public Use
  Company Number: FR-SUN PHARMACEUTICAL INDUSTRIES LTD-2023R1-411043

PATIENT
  Age: 68 Year
  Sex: Female
  Weight: 47 kg

DRUGS (7)
  1. AMOXICILLIN [Suspect]
     Active Substance: AMOXICILLIN
     Indication: Lung disorder
     Dosage: 4 DF, QD
     Route: 048
     Dates: start: 20220108, end: 20220115
  2. AZITHROMYCIN [Suspect]
     Active Substance: AZITHROMYCIN
     Indication: Lung disorder
     Dosage: 250 MILLIGRAM, QD
     Route: 048
     Dates: start: 20220108, end: 20220112
  3. LEVOFLOXACIN [Suspect]
     Active Substance: LEVOFLOXACIN
     Indication: Lung disorder
     Dosage: 500 MILLIGRAM, QD
     Route: 048
     Dates: start: 20220115, end: 20220120
  4. CEFEPIME [Suspect]
     Active Substance: CEFEPIME HYDROCHLORIDE
     Indication: Lung disorder
     Dosage: 4 GRAM, QD
     Route: 048
     Dates: start: 20220120, end: 20220120
  5. CEFPODOXIME PROXETIL [Suspect]
     Active Substance: CEFPODOXIME PROXETIL
     Indication: Lung disorder
     Dosage: 400 MILLIGRAM, QD
     Route: 048
     Dates: start: 20220105, end: 20220108
  6. AZACTAM [Suspect]
     Active Substance: AZTREONAM
     Indication: Lung disorder
     Dosage: 3 GRAM, QD
     Route: 048
     Dates: start: 20220121, end: 20220123
  7. CLAVULANIC ACID [Suspect]
     Active Substance: CLAVULANIC ACID
     Indication: Lung disorder
     Dosage: 4 DF, QD
     Route: 048
     Dates: start: 20220108, end: 20220115

REACTIONS (1)
  - Clostridium difficile infection [Recovered/Resolved]

NARRATIVE: CASE EVENT DATE: 20220122
